FAERS Safety Report 5642774-8 (Version None)
Quarter: 2008Q1

REPORT INFORMATION
  Report Type: 
  Country: None (occurrence: None)
  Receive Date: 20080228
  Receipt Date: 20080218
  Transmission Date: 20080703
  Serious: Yes (Hospitalization)
  Sender: FDA-Public Use
  Company Number: FR-AMGEN-US255544

PATIENT
  Sex: Male

DRUGS (7)
  1. ENBREL [Suspect]
     Indication: ANKYLOSING SPONDYLITIS
     Dosage: 50 MG TOTAL WEEKLY
     Route: 058
     Dates: start: 20070601, end: 20071015
  2. PLAVIX [Concomitant]
     Dosage: UNKNOWN
     Route: 065
  3. SOLUPRED [Concomitant]
     Dosage: UNKNOWN
     Route: 065
  4. TRIATEC [Concomitant]
     Dosage: UNKNOWN
     Route: 065
  5. RANITIDINE [Concomitant]
     Dosage: UNKNOWN
     Route: 065
  6. PREVISCAN [Concomitant]
     Dosage: UNKNOWN
     Route: 065
  7. DILTIAZEM HCL [Concomitant]
     Dosage: UNKNOWN
     Route: 065

REACTIONS (3)
  - DRY SKIN [None]
  - ECZEMA [None]
  - EOSINOPHILIA [None]
